FAERS Safety Report 9365836 (Version 2)
Quarter: 2013Q2

REPORT INFORMATION
  Report Type: Report from Study
  Country: NO (occurrence: NO)
  Receive Date: 20130625
  Receipt Date: 20130626
  Transmission Date: 20140414
  Serious: Yes (Life-Threatening, Hospitalization)
  Sender: FDA-Public Use
  Company Number: PHHO2013NO008231

PATIENT
  Age: 63 Year
  Sex: Male
  Weight: 83 kg

DRUGS (2)
  1. NEORAL [Suspect]
     Indication: RENAL TRANSPLANT
     Dosage: UNK
     Dates: start: 20111124
  2. MYFORTIC [Suspect]
     Indication: RENAL TRANSPLANT
     Dosage: UNK
     Dates: start: 20111124

REACTIONS (4)
  - Gastroenteritis rotavirus [Recovered/Resolved]
  - Cardiac arrest [Recovering/Resolving]
  - Cerebral haemorrhage [Not Recovered/Not Resolved]
  - Kidney transplant rejection [Recovering/Resolving]
